FAERS Safety Report 5422329-0 (Version None)
Quarter: 2007Q3

REPORT INFORMATION
  Report Type: 
  Country: None (occurrence: None)
  Receive Date: 20070820
  Receipt Date: 20070809
  Transmission Date: 20080115
  Serious: Yes (Hospitalization)
  Sender: FDA-Public Use
  Company Number: 230011M07ISR

PATIENT
  Age: 60 Year
  Sex: Male

DRUGS (2)
  1. REBIF [Suspect]
     Indication: RELAPSING-REMITTING MULTIPLE SCLEROSIS
     Dosage: 44, 3 IN 1 WEEKS, SUBCUTANEOUS;  22, 3 IN 1 WEEKS, SUBCUTANEOUS
     Route: 058
     Dates: start: 20010618, end: 20070515
  2. REBIF [Suspect]
     Indication: RELAPSING-REMITTING MULTIPLE SCLEROSIS
     Dosage: 44, 3 IN 1 WEEKS, SUBCUTANEOUS;  22, 3 IN 1 WEEKS, SUBCUTANEOUS
     Route: 058
     Dates: start: 20070515

REACTIONS (3)
  - ERYSIPELAS [None]
  - INJECTION SITE INFECTION [None]
  - STREPTOCOCCAL INFECTION [None]
